FAERS Safety Report 6124379-8 (Version None)
Quarter: 2009Q1

REPORT INFORMATION
  Report Type: 
  Country: None (occurrence: None)
  Receive Date: 20090319
  Receipt Date: 20090313
  Transmission Date: 20090719
  Serious: Yes (Hospitalization, Other)
  Sender: FDA-Public Use
  Company Number: US-PFIZER INC-2008020550

PATIENT
  Sex: Female
  Weight: 124.74 kg

DRUGS (24)
  1. BLINDED *PLACEBO [Suspect]
     Indication: OSTEOARTHRITIS
     Route: 048
     Dates: start: 20070504
  2. BLINDED CELECOXIB [Suspect]
     Indication: OSTEOARTHRITIS
     Route: 048
     Dates: start: 20070504
  3. IBUPROFEN TABLETS [Suspect]
     Indication: OSTEOARTHRITIS
     Route: 048
     Dates: start: 20070504
  4. NAPROXEN [Suspect]
     Indication: OSTEOARTHRITIS
     Route: 048
     Dates: start: 20070504
  5. NEXIUM [Concomitant]
     Indication: PROPHYLAXIS AGAINST GASTROINTESTINAL ULCER
     Dosage: FREQ/INT: DAILY
     Route: 048
     Dates: start: 20070504
  6. METFORMIN HCL [Concomitant]
     Route: 048
     Dates: start: 20050826
  7. LISINOPRIL [Concomitant]
     Route: 048
     Dates: start: 20031218
  8. ESTRADIOL [Concomitant]
     Route: 048
     Dates: start: 20040101
  9. ZOCOR [Concomitant]
     Route: 048
     Dates: start: 20020101, end: 20080209
  10. ACETYLSALICYLIC ACID [Concomitant]
     Route: 048
     Dates: start: 20060410
  11. IBUPROFEN TABLETS [Concomitant]
     Route: 048
     Dates: start: 20050101
  12. PRILOSEC [Concomitant]
     Route: 048
     Dates: start: 20070801
  13. FERROUS SULFATE TAB [Concomitant]
     Route: 048
     Dates: start: 20060101
  14. MULTI-VITAMINS [Concomitant]
     Route: 048
     Dates: start: 19990826
  15. CALCIUM/MINERALS/VITAMIN D [Concomitant]
     Route: 048
     Dates: start: 20050506
  16. LIPITOR [Concomitant]
     Route: 048
     Dates: start: 20051011
  17. GOTU KOLA [Concomitant]
     Route: 048
     Dates: start: 20050506
  18. SERTRALINE [Concomitant]
     Route: 048
     Dates: start: 19990515
  19. FUROSEMIDE [Concomitant]
     Route: 048
     Dates: start: 20031218
  20. POTASSIUM CHLORIDE [Concomitant]
     Route: 048
     Dates: start: 20031218
  21. GLUCOSAMINE [Concomitant]
     Route: 048
     Dates: start: 20050506
  22. CHONDROITIN [Concomitant]
     Route: 048
     Dates: start: 20050506
  23. TENIDAP SODIUM [Concomitant]
     Route: 048
     Dates: start: 20070713
  24. WARFARIN SODIUM [Concomitant]
     Route: 048
     Dates: start: 20081106

REACTIONS (2)
  - ARTHRALGIA [None]
  - HAEMORRHAGIC ANAEMIA [None]
